FAERS Safety Report 6709999-1 (Version None)
Quarter: 2010Q2

REPORT INFORMATION
  Report Type: 
  Country: None (occurrence: None)
  Receive Date: 20100430
  Receipt Date: 20100416
  Transmission Date: 20101027
  Serious: Yes (Hospitalization)
  Sender: FDA-Public Use
  Company Number: AMAG201000204

PATIENT
  Age: 71 Year
  Sex: Male
  Weight: 73.9 kg

DRUGS (19)
  1. FERAHEME [Suspect]
     Indication: ANAEMIA OF CHRONIC DISEASE
     Dosage: 510 MG, SINGLE INTRAVENOUS
     Route: 042
     Dates: start: 20100413, end: 20100413
  2. FERAHEME [Suspect]
     Indication: IRON DEFICIENCY ANAEMIA
     Dosage: 510 MG, SINGLE INTRAVENOUS
     Route: 042
     Dates: start: 20100413, end: 20100413
  3. AMIODARONE (AMIODARONE HYDROCHLORIDE) [Concomitant]
  4. COREG [Concomitant]
  5. IMDUR [Concomitant]
  6. HYDRALAZINE HCL [Concomitant]
  7. LASIX [Concomitant]
  8. SIMVASTATIN [Concomitant]
  9. ALBUTEROL (SALBUTAMOL SULFATE) [Concomitant]
  10. LEVOTHYROXINE SODIUM [Concomitant]
  11. NOVOLIN 70/30 [Concomitant]
  12. LANTUS [Concomitant]
  13. NOVOLIN R [Concomitant]
  14. COLACE (DOCUSATE SODIUM) [Concomitant]
  15. IRON [Concomitant]
  16. CALCIUM CITRATE W/VITAMIN D NOS (CALCIUM CITRATE, VITAMIN D NOS) [Concomitant]
  17. RENAGEL [Concomitant]
  18. MULTIVITAMIN [Concomitant]
  19. FIBERMED (FIBRE, DIETARY) [Concomitant]

REACTIONS (11)
  - BLOOD PRESSURE DECREASED [None]
  - BRAIN NATRIURETIC PEPTIDE INCREASED [None]
  - CAROTID ARTERY STENOSIS [None]
  - DEFAECATION URGENCY [None]
  - DIARRHOEA [None]
  - FLUID OVERLOAD [None]
  - HAEMATOCRIT DECREASED [None]
  - INFUSION SITE EXTRAVASATION [None]
  - NAUSEA [None]
  - PRESYNCOPE [None]
  - SYNCOPE [None]
